FAERS Safety Report 5634011-5 (Version None)
Quarter: 2008Q1

REPORT INFORMATION
  Report Type: 
  Country: None (occurrence: None)
  Receive Date: 20080221
  Receipt Date: 20080206
  Transmission Date: 20080703
  Serious: Yes (Other)
  Sender: FDA-Public Use
  Company Number: ES-GENENTECH-255595

PATIENT
  Age: 45 Year
  Sex: Female
  Weight: 80 kg

DRUGS (1)
  1. XOLAIR [Suspect]
     Indication: ASTHMA
     Dosage: 3 VIAL, Q2W
     Route: 058
     Dates: start: 20070701, end: 20080101

REACTIONS (1)
  - LEUKOCYTOCLASTIC VASCULITIS [None]
